FAERS Safety Report 5312928-9 (Version None)
Quarter: 2007Q2

REPORT INFORMATION
  Report Type: 
  Country: None (occurrence: None)
  Receive Date: 20070424
  Receipt Date: 20070409
  Transmission Date: 20071010
  Serious: Yes (Death, Hospitalization)
  Sender: FDA-Public Use
  Company Number: 2007-01011

PATIENT
  Age: 64 Year
  Sex: Male

DRUGS (3)
  1. VELCADE [Suspect]
     Indication: MULTIPLE MYELOMA
     Dates: start: 20060101
  2. VELCADE [Suspect]
     Indication: MULTIPLE MYELOMA
     Dates: start: 20070101
  3. THALIDOMIDE [Suspect]
     Indication: MULTIPLE MYELOMA
     Dates: start: 20070101

REACTIONS (5)
  - BRONCHOPULMONARY ASPERGILLOSIS [None]
  - DISEASE PROGRESSION [None]
  - MULTIPLE MYELOMA [None]
  - SPEECH DISORDER [None]
  - TREMOR [None]
